FAERS Safety Report 11636941 (Version 1)
Quarter: 2015Q4

REPORT INFORMATION
  Report Type: Spontaneous
  Country: HU (occurrence: HU)
  Receive Date: 20151016
  Receipt Date: 20151016
  Transmission Date: 20160304
  Serious: Yes (Other)
  Sender: FDA-Public Use
  Company Number: HU-PFIZER INC-2015147002

PATIENT
  Age: 37 Year
  Sex: Male

DRUGS (1)
  1. SUTENT [Suspect]
     Active Substance: SUNITINIB MALATE
     Indication: NEOPLASM MALIGNANT
     Dosage: 50 MG, DAILY, CYCLIC
     Route: 048

REACTIONS (9)
  - Glossodynia [Unknown]
  - Ascites [Unknown]
  - Retching [Unknown]
  - Pain [Unknown]
  - Disease progression [Unknown]
  - Thrombocytopenia [Not Recovered/Not Resolved]
  - Neoplasm malignant [Unknown]
  - Dry skin [Unknown]
  - Lipase increased [Unknown]
